FAERS Safety Report 9645586 (Version 6)
Quarter: 2014Q3

REPORT INFORMATION
  Report Type: Report from Study
  Country: US (occurrence: US)
  Receive Date: 20131025
  Receipt Date: 20140806
  Transmission Date: 20150326
  Serious: Yes (Hospitalization, Other)
  Sender: FDA-Public Use
  Company Number: US-US-EMD SERONO, INC.-7245125

PATIENT
  Age: 63 Year
  Sex: Female

DRUGS (3)
  1. REBIF [Suspect]
     Active Substance: INTERFERON BETA-1A
     Route: 058
     Dates: start: 20131120
  2. REBIF [Suspect]
     Active Substance: INTERFERON BETA-1A
     Route: 058
  3. REBIF [Suspect]
     Active Substance: INTERFERON BETA-1A
     Indication: MULTIPLE SCLEROSIS
     Route: 058
     Dates: start: 20051024, end: 20131006

REACTIONS (6)
  - Malaise [Recovered/Resolved]
  - Pneumonia [Recovered/Resolved]
  - Sinusitis [Recovered/Resolved]
  - Immunodeficiency [Recovered/Resolved]
  - Fatigue [Recovered/Resolved]
  - Ear infection [Recovered/Resolved]

NARRATIVE: CASE EVENT DATE: 20131008
